FAERS Safety Report 9643081 (Version 1)
Quarter: 2013Q4

REPORT INFORMATION
  Report Type: Spontaneous
  Country: GB (occurrence: None)
  Receive Date: 20131022
  Receipt Date: 20131022
  Transmission Date: 20140711
  Serious: Yes (Other)
  Sender: FDA-Public Use
  Company Number: AUR-APL-2013-08538

PATIENT
  Age: 36 Year
  Sex: Male

DRUGS (3)
  1. RIBAVIRIN [Suspect]
     Indication: HEPATITIS C
     Route: 048
  2. INCIVO (TELAPREVIR) [Suspect]
     Indication: HEPATITIS C
     Dosage: (3 IN 1 D)
     Route: 048
  3. PEGINTERFERON AFLA-2B [Suspect]
     Indication: HEPATITIS C
     Route: 058

REACTIONS (5)
  - Depressed mood [None]
  - Decreased appetite [None]
  - Fatigue [None]
  - Depressed mood [None]
  - Yellow skin [None]
